FAERS Safety Report 23118982 (Version 1)
Quarter: 2023Q4

REPORT INFORMATION
  Report Type: Spontaneous
  Country: TR (occurrence: TR)
  Receive Date: 20231028
  Receipt Date: 20231028
  Transmission Date: 20240109
  Serious: Yes (Death, Other)
  Sender: FDA-Public Use
  Company Number: TR-AMGEN-TURSP2023192474

PATIENT

DRUGS (1)
  1. BLINATUMOMAB [Suspect]
     Active Substance: BLINATUMOMAB
     Indication: B-cell type acute leukaemia
     Dosage: 1-3 CYCLES
     Route: 065

REACTIONS (4)
  - Death [Fatal]
  - Neurotoxicity [Unknown]
  - Neutropenia [Unknown]
  - Cytokine release syndrome [Unknown]
